FAERS Safety Report 8555483-2 (Version None)
Quarter: 2012Q3

REPORT INFORMATION
  Report Type: 
  Country: None (occurrence: None)
  Receive Date: 20120731
  Receipt Date: 20120416
  Transmission Date: 20120928
  Serious: No
  Sender: FDA-Public Use
  Company Number: US-ASTRAZENECA-2011SE15838

PATIENT
  Age: 58 Year
  Sex: Female
  Weight: 59.9 kg

DRUGS (13)
  1. SEROQUEL [Suspect]
     Route: 048
     Dates: start: 20100601, end: 20110101
  2. SEROQUEL [Suspect]
     Route: 048
  3. SEROQUEL [Suspect]
     Indication: BIPOLAR I DISORDER
     Route: 048
     Dates: start: 20100601, end: 20110101
  4. DOXYCYCLINE HCL [Concomitant]
     Indication: ACNE
  5. CHOLESTREOL MEDICATION [Concomitant]
     Indication: BLOOD CHOLESTEROL ABNORMAL
  6. VITAMIN PILL [Concomitant]
     Indication: NUTRITIONAL SUPPORT
  7. VITAMIN D [Concomitant]
     Indication: NUTRITIONAL SUPPORT
  8. ZOLOFT [Concomitant]
     Indication: BIPOLAR DISORDER
  9. SEROQUEL [Suspect]
     Route: 048
     Dates: start: 20110101
  10. SEROQUEL [Suspect]
     Route: 048
  11. LOVAZA [Concomitant]
     Indication: HYPERCHOLESTEROLAEMIA
  12. LEVOTHYROXINE SODIUM [Concomitant]
     Indication: THYROID DISORDER
  13. LIPOIC ACID [Concomitant]
     Indication: NUTRITIONAL SUPPORT

REACTIONS (10)
  - WEIGHT INCREASED [None]
  - BIPOLAR DISORDER [None]
  - CRYING [None]
  - MOTION SICKNESS [None]
  - DEPRESSION [None]
  - DIZZINESS [None]
  - SOMNOLENCE [None]
  - BLOOD CHOLESTEROL INCREASED [None]
  - MANIA [None]
  - INTENTIONAL DRUG MISUSE [None]
